FAERS Safety Report 4381462-5 (Version None)
Quarter: 2004Q2

REPORT INFORMATION
  Report Type: 
  Country: None (occurrence: None)
  Receive Date: 20040618
  Receipt Date: 20040618
  Transmission Date: 20050107
  Serious: Yes (Other)
  Sender: FDA-Public Use
  Company Number: None

PATIENT
  Sex: Female
  Weight: 63.5036 kg

DRUGS (2)
  1. PAXIL [Suspect]
     Indication: DEPRESSION
     Dosage: 20 MG QD ORAL
     Route: 048
     Dates: start: 19980101, end: 20040617
  2. PAXIL [Suspect]
     Indication: SOCIAL PHOBIA
     Dosage: 20 MG QD ORAL
     Route: 048
     Dates: start: 19980101, end: 20040617

REACTIONS (1)
  - DRUG WITHDRAWAL SYNDROME [None]
